FAERS Safety Report 7621309-4 (Version None)
Quarter: 2011Q3

REPORT INFORMATION
  Report Type: 
  Country: None (occurrence: None)
  Receive Date: 20110719
  Receipt Date: 20110713
  Transmission Date: 20111222
  Serious: Yes (Hospitalization)
  Sender: FDA-Public Use
  Company Number: US-B.I. PHARMACEUTICALS,INC./RIDGEFIELD-2011-BP-17663BP

PATIENT

DRUGS (2)
  1. MULTAQ [Suspect]
     Dosage: 800 MG
     Route: 048
  2. PRADAXA [Suspect]
     Dosage: 300 MG
     Route: 065

REACTIONS (1)
  - EPISTAXIS [None]
